FAERS Safety Report 12174234 (Version 7)
Quarter: 2018Q3

REPORT INFORMATION
  Report Type: Report from Study
  Country: CA (occurrence: CA)
  Receive Date: 20160314
  Receipt Date: 20180829
  Transmission Date: 20181010
  Serious: Yes (Hospitalization, Other)
  Sender: FDA-Public Use
  Company Number: CA-ROCHE-1577661

PATIENT
  Age: 37 Year
  Sex: Female
  Weight: 91.1 kg

DRUGS (14)
  1. RITUXAN [Suspect]
     Active Substance: RITUXIMAB
     Indication: NEUROMYELITIS OPTICA SPECTRUM DISORDER
     Dosage: RECENT RITUXIMAB INFUSION: ON 06/JAN/2017
     Route: 042
     Dates: start: 20150512
  2. BACLOFEN. [Concomitant]
     Active Substance: BACLOFEN
     Dosage: IN TRANSITION TO NEUROTIN NOS
     Route: 065
  3. PNEUMOCOCCAL VACCINE POLYVALENT NOS [Concomitant]
     Active Substance: PNEUMOCOCCAL VACCINE POLYVALENT
     Route: 065
     Dates: start: 20180808
  4. IMURAN [Concomitant]
     Active Substance: AZATHIOPRINE
  5. ACETAMINOPHEN. [Concomitant]
     Active Substance: ACETAMINOPHEN
     Indication: PREMEDICATION
     Route: 048
     Dates: start: 20150512
  6. METHYLPREDNISOLONE. [Concomitant]
     Active Substance: METHYLPREDNISOLONE
     Indication: PREMEDICATION
     Route: 042
     Dates: start: 20150512
  7. DICETEL [Concomitant]
     Active Substance: PINAVERIUM BROMIDE
  8. ELAVIL [Concomitant]
     Active Substance: AMITRIPTYLINE HYDROCHLORIDE
  9. RITUXAN [Suspect]
     Active Substance: RITUXIMAB
     Indication: NEUROMYELITIS OPTICA SPECTRUM DISORDER
     Route: 042
     Dates: start: 20160309
  10. PANTOLOC [Concomitant]
     Active Substance: PANTOPRAZOLE SODIUM
  11. LYRICA [Concomitant]
     Active Substance: PREGABALIN
     Dosage: IN TRANSITION TO NEUROTIN
     Route: 065
  12. TEGRETOL [Concomitant]
     Active Substance: CARBAMAZEPINE
  13. DIPHENHYDRAMINE HYDROCHLORIDE. [Concomitant]
     Active Substance: DIPHENHYDRAMINE HYDROCHLORIDE
     Indication: PREMEDICATION
     Route: 048
     Dates: start: 20150512
  14. CELEXA [Concomitant]
     Active Substance: CITALOPRAM HYDROBROMIDE

REACTIONS (24)
  - Hypoaesthesia [Unknown]
  - Fatigue [Not Recovered/Not Resolved]
  - Sleep apnoea syndrome [Unknown]
  - Hypoaesthesia [Not Recovered/Not Resolved]
  - Pain in extremity [Recovered/Resolved]
  - Gastroenteritis [Recovered/Resolved]
  - Pneumonia [Unknown]
  - Peripheral swelling [Recovering/Resolving]
  - Clostridium difficile infection [Recovered/Resolved]
  - Neuromyelitis optica spectrum disorder [Unknown]
  - Headache [Unknown]
  - Off label use [Unknown]
  - Immunoglobulins decreased [Unknown]
  - Heart rate increased [Unknown]
  - Infusion related reaction [Recovered/Resolved]
  - Diarrhoea [Recovered/Resolved]
  - Sinusitis [Unknown]
  - Oedema peripheral [Unknown]
  - Medication error [Unknown]
  - Alopecia [Recovering/Resolving]
  - Pneumonia [Not Recovered/Not Resolved]
  - Aphonia [Recovering/Resolving]
  - Varicose vein [Unknown]
  - Cough [Not Recovered/Not Resolved]

NARRATIVE: CASE EVENT DATE: 20150512
